FAERS Safety Report 17649790 (Version 1)
Quarter: 2020Q2

REPORT INFORMATION
  Report Type: Spontaneous
  Country: US (occurrence: US)
  Receive Date: 20200408
  Receipt Date: 20200408
  Transmission Date: 20200713
  Serious: No
  Sender: FDA-Public Use
  Company Number: None

PATIENT
  Sex: Male

DRUGS (1)
  1. ANCEF [Suspect]
     Active Substance: CEFAZOLIN SODIUM
     Dates: start: 20191125, end: 20191125

REACTIONS (4)
  - Feeling hot [None]
  - Oxygen saturation decreased [None]
  - Hypotension [None]
  - Blood pressure decreased [None]

NARRATIVE: CASE EVENT DATE: 20191125
